FAERS Safety Report 8203455-X (Version None)
Quarter: 2012Q1

REPORT INFORMATION
  Report Type: 
  Country: None (occurrence: None)
  Receive Date: 20120313
  Receipt Date: 20120308
  Transmission Date: 20120608
  Serious: Yes (Death, Life-Threatening, Hospitalization)
  Sender: FDA-Public Use
  Company Number: MX-BRISTOL-MYERS SQUIBB COMPANY-16185340

PATIENT
  Age: 48 Year
  Sex: Female
  Weight: 38 kg

DRUGS (7)
  1. ACETAMINOPHEN [Concomitant]
     Indication: TUMOUR PAIN
     Dates: start: 20110814
  2. ERBITUX [Suspect]
     Indication: HEAD AND NECK CANCER
     Dosage: 7-7OCT11;1DAY;1D OF CYC 1ONLY,14OCT11-ONG;250MG/M2 D1,8,15,VIAL,LAST DOSE ON :14OCT11,WKLY DOSE.
     Route: 042
     Dates: start: 20111007, end: 20111014
  3. DEXTROPROPOXIFEN [Concomitant]
     Indication: TUMOUR PAIN
     Dates: start: 20110814
  4. CARBAMAZEPINE [Concomitant]
     Indication: TUMOUR PAIN
     Dates: start: 20110814
  5. CLONAZEPAM [Concomitant]
     Indication: TUMOUR PAIN
     Dates: start: 20110814
  6. CISPLATIN [Suspect]
     Indication: HEAD AND NECK CANCER
     Dosage: 07OCT11-07OCT11,07OCT11-ONG,D1,LAST DOSE ON 14OCT11,WEEKLY DOSE
     Route: 042
     Dates: start: 20111007
  7. FLUOROURACIL [Suspect]
     Indication: HEAD AND NECK CANCER
     Dosage: D1-D4,LAST DOSE ON 10OCT11(4DAYS),07OCT11-ONG
     Route: 042
     Dates: start: 20111007

REACTIONS (8)
  - HYPOVOLAEMIC SHOCK [None]
  - SEPSIS [None]
  - PNEUMONIA [None]
  - NAUSEA [None]
  - PANCYTOPENIA [None]
  - HYPONATRAEMIA [None]
  - VOMITING [None]
  - HAEMORRHAGE INTRACRANIAL [None]
